FAERS Safety Report 4648807-X (Version None)
Quarter: 2005Q2

REPORT INFORMATION
  Report Type: 
  Country: None (occurrence: None)
  Receive Date: 20050427
  Receipt Date: 20050414
  Transmission Date: 20051028
  Serious: No
  Sender: FDA-Public Use
  Company Number: USA050495003

PATIENT
  Age: 52 Year
  Sex: Female

DRUGS (1)
  1. ZYPREXA [Suspect]
     Dosage: 10 MG DAY
     Dates: start: 20030101

REACTIONS (2)
  - BLOOD URINE PRESENT [None]
  - METRORRHAGIA [None]
